FAERS Safety Report 11568980 (Version 1)
Quarter: 2015Q3

REPORT INFORMATION
  Report Type: Spontaneous
  Country: US (occurrence: None)
  Receive Date: 20150928
  Receipt Date: 20150928
  Transmission Date: 20151125
  Serious: No
  Sender: FDA-Public Use
  Company Number: None

PATIENT
  Age: 47 Year
  Sex: Female
  Weight: 58.97 kg

DRUGS (1)
  1. APO-TRAMADOL/ACET 37.5/325MG [Suspect]
     Active Substance: ACETAMINOPHEN\TRAMADOL HYDROCHLORIDE
     Indication: PAIN
     Dosage: 1-2 PILLS EVERY 4 HOURS
     Route: 048
     Dates: start: 20140914, end: 20150914

REACTIONS (7)
  - Back pain [None]
  - Burning sensation [None]
  - Neck pain [None]
  - Panic attack [None]
  - Headache [None]
  - Drug ineffective [None]
  - Condition aggravated [None]
